FAERS Safety Report 4991919-1 (Version None)
Quarter: 2006Q2

REPORT INFORMATION
  Report Type: 
  Country: None (occurrence: None)
  Receive Date: 20060504
  Receipt Date: 20050408
  Transmission Date: 20061013
  Serious: Yes (Hospitalization)
  Sender: FDA-Public Use
  Company Number: DE-MERCK-0504DEU00065

PATIENT
  Age: 33 Year
  Sex: Female
  Weight: 53 kg

DRUGS (15)
  1. VIOXX [Suspect]
     Indication: RHEUMATOID ARTHRITIS
     Route: 048
     Dates: start: 20030213, end: 20040101
  2. VIOXX [Suspect]
     Route: 048
     Dates: start: 20040801, end: 20040830
  3. FOLIC ACID [Concomitant]
     Route: 065
  4. METHOTREXATE [Suspect]
     Indication: RHEUMATOID ARTHRITIS
     Route: 065
  5. HYDROXYCHLOROQUINE SULFATE [Concomitant]
     Route: 065
  6. ENBREL [Concomitant]
     Route: 065
     Dates: start: 20031001, end: 20040101
  7. ZOLPIDEM TARTRATE [Concomitant]
     Route: 065
     Dates: start: 20040226
  8. DICLOFENAC DIETHYLAMINE [Concomitant]
     Route: 061
     Dates: start: 20040226
  9. LANSOPRAZOLE [Concomitant]
     Route: 065
     Dates: start: 20040226
  10. FEXOFENADINE HYDROCHLORIDE [Concomitant]
     Route: 065
     Dates: start: 20040305
  11. AMBROXOL [Concomitant]
     Route: 065
     Dates: start: 20040305
  12. AMBROXOL HYDROCHLORIDE AND CLENBUTEROL HYDROCHLORIDE [Concomitant]
     Route: 065
     Dates: start: 20040305
  13. MIRTAZAPINE [Concomitant]
     Route: 065
     Dates: start: 20040317
  14. SULFAMETHOXAZOLE AND TRIMETHOPRIM [Concomitant]
     Route: 065
     Dates: start: 20040329
  15. ALBUTEROL [Concomitant]
     Route: 065
     Dates: start: 20040401

REACTIONS (37)
  - ABDOMINAL DISCOMFORT [None]
  - ABDOMINAL PAIN [None]
  - ABDOMINAL PAIN UPPER [None]
  - ANAL HAEMORRHAGE [None]
  - CONJUNCTIVITIS [None]
  - DELUSION [None]
  - DEPRESSION [None]
  - DERMATITIS ALLERGIC [None]
  - DYSPHONIA [None]
  - EPISTAXIS [None]
  - FIBROMYALGIA [None]
  - GASTROENTERITIS [None]
  - GASTROINTESTINAL DISORDER [None]
  - HAEMATURIA [None]
  - HERPES SIMPLEX [None]
  - HYPERCHOLESTEROLAEMIA [None]
  - INFLUENZA [None]
  - IRON DEFICIENCY ANAEMIA [None]
  - IRRITABLE BOWEL SYNDROME [None]
  - MUSCLE RIGIDITY [None]
  - ORAL CANDIDIASIS [None]
  - OSTEOPENIA [None]
  - OSTEOPOROSIS [None]
  - OVERDOSE [None]
  - PERSONALITY DISORDER [None]
  - PHARYNGITIS [None]
  - RECTAL HAEMORRHAGE [None]
  - RENAL COLIC [None]
  - RENAL DISORDER [None]
  - RENAL PAPILLARY NECROSIS [None]
  - RHEUMATOID ARTHRITIS [None]
  - SINUSITIS [None]
  - SKIN PAPILLOMA [None]
  - SLEEP DISORDER [None]
  - SPINAL OSTEOARTHRITIS [None]
  - URINARY TRACT INFECTION [None]
  - WOUND INFECTION [None]
